FAERS Safety Report 23350372 (Version 1)
Quarter: 2023Q4

REPORT INFORMATION
  Report Type: Spontaneous
  Country: GB (occurrence: GB)
  Receive Date: 20231229
  Receipt Date: 20231229
  Transmission Date: 20240110
  Serious: Yes (Hospitalization)
  Sender: FDA-Public Use
  Company Number: GB-Accord-397306

PATIENT
  Age: 78 Year
  Sex: Male

DRUGS (1)
  1. PIRFENIDONE [Suspect]
     Active Substance: PIRFENIDONE
     Indication: Product used for unknown indication
     Dosage: 267 MG, FREQUENCY: 3 PER DAY
     Route: 065
     Dates: start: 202309

REACTIONS (1)
  - Colitis [Unknown]
